FAERS Safety Report 16990292 (Version 1)
Quarter: 2019Q4

REPORT INFORMATION
  Report Type: Spontaneous
  Country: US (occurrence: US)
  Receive Date: 20191104
  Receipt Date: 20191104
  Transmission Date: 20200122
  Serious: Yes (Other)
  Sender: FDA-Public Use
  Company Number: US-BRISTOL-MYERS SQUIBB COMPANY-BMS-2019-102866

PATIENT
  Age: 76 Year
  Sex: Female
  Weight: 48.53 kg

DRUGS (3)
  1. ROSUVASTATIN. [Concomitant]
     Active Substance: ROSUVASTATIN
     Indication: PRODUCT USED FOR UNKNOWN INDICATION
     Dosage: UNK
     Route: 065
  2. PREDNISONE. [Concomitant]
     Active Substance: PREDNISONE
     Indication: PRODUCT USED FOR UNKNOWN INDICATION
     Dosage: UNK
     Route: 065
  3. OPDIVO [Suspect]
     Active Substance: NIVOLUMAB
     Indication: MALIGNANT MELANOMA
     Dosage: ONE DOSE
     Route: 042
     Dates: start: 20190610

REACTIONS (6)
  - Dysgeusia [Unknown]
  - Urine odour abnormal [Unknown]
  - Tremor [Unknown]
  - Skin lesion [Unknown]
  - Feeling abnormal [Unknown]
  - Pruritus [Unknown]

NARRATIVE: CASE EVENT DATE: 201906
